FAERS Safety Report 4719005-6 (Version None)
Quarter: 2005Q3

REPORT INFORMATION
  Report Type: 
  Country: None (occurrence: None)
  Receive Date: 20050719
  Receipt Date: 20050713
  Transmission Date: 20060218
  Serious: Yes (Other)
  Sender: FDA-Public Use
  Company Number: JP_050406364

PATIENT
  Age: 78 Year
  Sex: Female
  Weight: 42 kg

DRUGS (9)
  1. EVISTA [Suspect]
     Indication: OSTEOPOROSIS
     Dosage: 60 MG/ 1 DAY
     Route: 048
     Dates: start: 20050324, end: 20050413
  2. ALFAROL (ALFACALCIDOL) [Concomitant]
  3. PEON (ZALTOPROFEN) [Concomitant]
  4. METHYCOBAL           (MECOBALAMIN) [Concomitant]
  5. MYONAL (EPERISONE HYDROCHLORIDE) [Concomitant]
  6. PURSENNID [Concomitant]
  7. NEUCHOLIN-A         (ACETYLCHOLINE CHLORIDE) [Concomitant]
  8. XYLOCAINE #1 (LIDOCAINE) [Concomitant]
  9. ELCITONIN         (ELCATONIN) [Concomitant]

REACTIONS (5)
  - ANAEMIA [None]
  - BLOOD IRON DECREASED [None]
  - BLOOD IRON INCREASED [None]
  - CONDITION AGGRAVATED [None]
  - DIZZINESS [None]
